FAERS Safety Report 12537443 (Version 3)
Quarter: 2016Q3

REPORT INFORMATION
  Report Type: Report from Study
  Country: US (occurrence: US)
  Receive Date: 20160707
  Receipt Date: 20160816
  Transmission Date: 20161109
  Serious: Yes (Other)
  Sender: FDA-Public Use
  Company Number: US-PFIZER INC-2016329457

PATIENT
  Age: 79 Year
  Sex: Female
  Weight: 65.76 kg

DRUGS (1)
  1. NEURONTIN [Suspect]
     Active Substance: GABAPENTIN
     Indication: NEUROPATHY PERIPHERAL
     Dosage: UNK, 3X/DAY
     Route: 048
     Dates: start: 20150430, end: 20150704

REACTIONS (4)
  - Memory impairment [Unknown]
  - Personality change [Unknown]
  - Aphasia [Unknown]
  - Discomfort [Unknown]

NARRATIVE: CASE EVENT DATE: 20150505
